FAERS Safety Report 24214814 (Version 1)
Quarter: 2024Q3

REPORT INFORMATION
  Report Type: Spontaneous
  Country: US (occurrence: US)
  Receive Date: 20240815
  Receipt Date: 20240815
  Transmission Date: 20241017
  Serious: No
  Sender: RVL PHARMACEUTICALS
  Company Number: US-RVL_Pharmaceuticals-USA-POI1255202400115

PATIENT
  Age: 75 Year

DRUGS (1)
  1. UPNEEQ [Suspect]
     Active Substance: OXYMETAZOLINE HYDROCHLORIDE
     Indication: Eyelid ptosis
     Dosage: OU
     Route: 047
     Dates: start: 20240430, end: 20240501

REACTIONS (7)
  - Vision blurred [Recovered/Resolved]
  - Eye pain [Recovering/Resolving]
  - Pain of skin [Recovered/Resolved]
  - Eye swelling [Recovered/Resolved]
  - Eyelid disorder [Recovered/Resolved]
  - Eye haemorrhage [Recovering/Resolving]
  - Feeling abnormal [Recovered/Resolved]

NARRATIVE: CASE EVENT DATE: 20240430
